FAERS Safety Report 22359893 (Version 1)
Quarter: 2023Q2

REPORT INFORMATION
  Report Type: Spontaneous
  Country: KR (occurrence: KR)
  Receive Date: 20230524
  Receipt Date: 20230524
  Transmission Date: 20230722
  Serious: Yes (Other)
  Sender: FDA-Public Use
  Company Number: KR-002147023-NVSC2023KR117763

PATIENT
  Age: 51 Year
  Sex: Female

DRUGS (2)
  1. SECUKINUMAB [Suspect]
     Active Substance: SECUKINUMAB
     Indication: Ankylosing spondylitis
     Dosage: 150 MG, QMO (EVERY 4 WEEKS)
     Route: 058
  2. SECUKINUMAB [Suspect]
     Active Substance: SECUKINUMAB
     Dosage: 150 MG, Q2W
     Route: 065

REACTIONS (6)
  - IgA nephropathy [Unknown]
  - Proteinuria [Recovering/Resolving]
  - Haematuria [Unknown]
  - Blood immunoglobulin A increased [Unknown]
  - Off label use [Unknown]
  - Therapeutic response shortened [Unknown]
